FAERS Safety Report 13332674 (Version 2)
Quarter: 2017Q2

REPORT INFORMATION
  Report Type: Spontaneous
  Country: US (occurrence: US)
  Receive Date: 20170314
  Receipt Date: 20170426
  Transmission Date: 20170830
  Serious: Yes (Other)
  Sender: FDA-Public Use
  Company Number: US-PFIZER INC-2017099620

PATIENT
  Sex: Female

DRUGS (1)
  1. XELJANZ XR [Suspect]
     Active Substance: TOFACITINIB CITRATE
     Dosage: 11 MG, DAILY

REACTIONS (18)
  - Arthralgia [Unknown]
  - Myalgia [Unknown]
  - Musculoskeletal stiffness [Unknown]
  - Pain [Unknown]
  - Constipation [Unknown]
  - Weight increased [Unknown]
  - Malaise [Unknown]
  - Nausea [Unknown]
  - Sleep disorder [Unknown]
  - Diabetes mellitus inadequate control [Unknown]
  - Liver function test increased [Unknown]
  - Fatigue [Unknown]
  - Headache [Unknown]
  - Feeling abnormal [Unknown]
  - Back pain [Unknown]
  - Asthenia [Unknown]
  - Dyspepsia [Unknown]
  - Tenderness [Unknown]
